FAERS Safety Report 4407283-2 (Version None)
Quarter: 2004Q3

REPORT INFORMATION
  Report Type: 
  Country: None (occurrence: None)
  Receive Date: 20040721
  Receipt Date: 20040701
  Transmission Date: 20050211
  Serious: Yes (Other)
  Sender: FDA-Public Use
  Company Number: USA040771512

PATIENT
  Age: 34 Year
  Sex: Male

DRUGS (2)
  1. XIGRIS [Suspect]
     Indication: SEPSIS
  2. VASOPRESSOR AGENTS [Concomitant]

REACTIONS (1)
  - SEPSIS [None]
